FAERS Safety Report 4488599-0 (Version None)
Quarter: 2004Q4

REPORT INFORMATION
  Report Type: 
  Country: None (occurrence: None)
  Receive Date: 20041026
  Receipt Date: 20041011
  Transmission Date: 20050328
  Serious: Yes (Death)
  Sender: FDA-Public Use
  Company Number: US014059

PATIENT
  Sex: Female

DRUGS (8)
  1. PROVIGIL [Suspect]
     Indication: ASTHENIA
     Dates: start: 20040608, end: 20040608
  2. LASIX [Concomitant]
  3. SYNTHROID [Concomitant]
  4. COUMADIN [Concomitant]
  5. ZOCOR [Concomitant]
  6. CARDIZEM [Concomitant]
  7. COZAAR [Concomitant]
  8. SINEMET [Concomitant]

REACTIONS (1)
  - DEATH [None]
